FAERS Safety Report 4950504-8 (Version None)
Quarter: 2006Q1

REPORT INFORMATION
  Report Type: 
  Country: None (occurrence: None)
  Receive Date: 20060322
  Receipt Date: 20060314
  Transmission Date: 20060701
  Serious: Yes (Hospitalization)
  Sender: FDA-Public Use
  Company Number: JP-JPN-A200600948

PATIENT
  Age: 4 Year
  Sex: Female

DRUGS (1)
  1. ZOVIRAX [Suspect]
     Indication: VARICELLA
     Dosage: 300MG FOUR TIMES PER DAY
     Route: 048
     Dates: start: 20060313, end: 20060314

REACTIONS (1)
  - ERYTHEMA [None]
